FAERS Safety Report 12457152 (Version 1)
Quarter: 2016Q2

REPORT INFORMATION
  Report Type: Spontaneous
  Country: US (occurrence: US)
  Receive Date: 20160610
  Receipt Date: 20160610
  Transmission Date: 20160815
  Serious: Yes (Death, Other)
  Sender: FDA-Public Use
  Company Number: US-CELGENEUS-USA-2016057005

PATIENT

DRUGS (2)
  1. BIRINAPANT [Suspect]
     Active Substance: BIRINAPANT
     Indication: MYELODYSPLASTIC SYNDROME
     Route: 041
  2. AZACITIDINE INJECTABLE [Suspect]
     Active Substance: AZACITIDINE
     Indication: MYELODYSPLASTIC SYNDROME
     Dosage: 75 MILLIGRAM/SQ. METER
     Route: 065

REACTIONS (4)
  - Infection [Unknown]
  - Adverse event [Fatal]
  - Thrombocytopenia [Unknown]
  - Febrile neutropenia [Unknown]
